FAERS Safety Report 14669215 (Version 7)
Quarter: 2022Q4

REPORT INFORMATION
  Report Type: Report from Study
  Country: BR (occurrence: BR)
  Receive Date: 20180322
  Receipt Date: 20221218
  Transmission Date: 20230113
  Serious: Yes (Hospitalization, Other)
  Sender: FDA-Public Use
  Company Number: BR-JNJFOC-20180322106

PATIENT
  Age: 7 Decade
  Sex: Female
  Weight: 62 kg

DRUGS (6)
  1. SIMPONI [Suspect]
     Active Substance: GOLIMUMAB
     Indication: Rheumatoid arthritis
     Route: 058
     Dates: start: 20170705, end: 20171005
  2. SIMPONI [Suspect]
     Active Substance: GOLIMUMAB
     Route: 058
     Dates: end: 201801
  3. ERTAPENEM [Concomitant]
     Active Substance: ERTAPENEM
     Route: 065
  4. MEROPENEM [Concomitant]
     Active Substance: MEROPENEM
     Route: 065
  5. PREGABALIN [Concomitant]
     Active Substance: PREGABALIN
     Route: 065
  6. CLONAZEPAM [Concomitant]
     Active Substance: CLONAZEPAM
     Route: 065

REACTIONS (14)
  - Device related infection [Recovered/Resolved]
  - Nosocomial infection [Recovered/Resolved]
  - Rib fracture [Recovered/Resolved]
  - Limb asymmetry [Recovering/Resolving]
  - Accident [Unknown]
  - Femur fracture [Unknown]
  - Rheumatoid arthritis [Not Recovered/Not Resolved]
  - Weight decreased [Unknown]
  - Hypoaesthesia [Unknown]
  - Injection site scar [Unknown]
  - Fall [Unknown]
  - Skin discolouration [Unknown]
  - Product dose omission issue [Unknown]
  - Arthropathy [Unknown]

NARRATIVE: CASE EVENT DATE: 20180101
